FAERS Safety Report 17284460 (Version 5)
Quarter: 2021Q2

REPORT INFORMATION
  Report Type: Report from Study
  Country: None (occurrence: US)
  Receive Date: 20200117
  Receipt Date: 20210419
  Transmission Date: 20210716
  Serious: Yes (Other)
  Sender: FDA-Public Use
  Company Number: US-ABBVIE-19K-163-3151879-00

PATIENT
  Age: 66 Year
  Sex: Male

DRUGS (13)
  1. IMBRUVICA [Suspect]
     Active Substance: IBRUTINIB
     Dosage: 420 MG, QD
     Route: 048
     Dates: start: 20181116
  2. IMBRUVICA [Suspect]
     Active Substance: IBRUTINIB
     Route: 048
  3. AMLODIPINE [Concomitant]
     Active Substance: AMLODIPINE BESYLATE
     Indication: PRODUCT USED FOR UNKNOWN INDICATION
     Dosage: 10 MG, UNK
  4. SYNTHROID [Concomitant]
     Active Substance: LEVOTHYROXINE SODIUM
     Indication: PRODUCT USED FOR UNKNOWN INDICATION
  5. TESTOSTERONE. [Concomitant]
     Active Substance: TESTOSTERONE
     Indication: PRODUCT USED FOR UNKNOWN INDICATION
  6. PREVACID [Concomitant]
     Active Substance: LANSOPRAZOLE
     Indication: PRODUCT USED FOR UNKNOWN INDICATION
  7. CALCIUM CITRATE [Concomitant]
     Active Substance: CALCIUM CITRATE
     Indication: PRODUCT USED FOR UNKNOWN INDICATION
  8. IMBRUVICA [Suspect]
     Active Substance: IBRUTINIB
     Route: 048
  9. UREA. [Concomitant]
     Active Substance: UREA
     Indication: PIGMENTATION DISORDER
  10. IMBRUVICA [Suspect]
     Active Substance: IBRUTINIB
     Indication: CHRONIC LYMPHOCYTIC LEUKAEMIA
     Dosage: 420 MG, QD
     Route: 048
     Dates: start: 20181117
  11. FENOFIBRATE. [Concomitant]
     Active Substance: FENOFIBRATE
     Indication: PRODUCT USED FOR UNKNOWN INDICATION
  12. IMBRUVICA [Suspect]
     Active Substance: IBRUTINIB
     Dosage: 420 MG, QD
     Route: 048
     Dates: start: 20181114
  13. VALTREX [Concomitant]
     Active Substance: VALACYCLOVIR HYDROCHLORIDE
     Indication: PRODUCT USED FOR UNKNOWN INDICATION

REACTIONS (23)
  - Contusion [Not Recovered/Not Resolved]
  - Dry skin [Unknown]
  - Blood blister [Not Recovered/Not Resolved]
  - Haemoglobin abnormal [Unknown]
  - Secretion discharge [Recovered/Resolved]
  - Red blood cell count abnormal [Unknown]
  - Skin fissures [Recovered/Resolved]
  - Blood iron decreased [Unknown]
  - Pruritus [Recovered/Resolved]
  - Nail disorder [Not Recovered/Not Resolved]
  - Feeling abnormal [Unknown]
  - Laryngitis [Recovering/Resolving]
  - Gastrooesophageal reflux disease [Unknown]
  - Onychomycosis [Not Recovered/Not Resolved]
  - Pruritus [Recovered/Resolved]
  - Ingrowing nail [Recovered/Resolved]
  - Prostatitis [Unknown]
  - Nail disorder [Unknown]
  - Product dose omission issue [Unknown]
  - Prostatic specific antigen abnormal [Unknown]
  - Onychoclasis [Not Recovered/Not Resolved]
  - Rash [Unknown]
  - White blood cell count decreased [Unknown]

NARRATIVE: CASE EVENT DATE: 201906
